FAERS Safety Report 10510346 (Version 10)
Quarter: 2015Q3

REPORT INFORMATION
  Report Type: Report from Study
  Country: US (occurrence: US)
  Receive Date: 20141010
  Receipt Date: 20150928
  Transmission Date: 20151125
  Serious: No
  Sender: FDA-Public Use
  Company Number: US-JNJFOC-20140110400

PATIENT
  Age: 55 Year
  Sex: Male

DRUGS (4)
  1. REMICADE [Suspect]
     Active Substance: INFLIXIMAB
     Indication: PSORIASIS
     Route: 042
     Dates: end: 20150603
  2. REMICADE [Suspect]
     Active Substance: INFLIXIMAB
     Indication: PSORIASIS
     Route: 042
     Dates: end: 20150119
  3. REMICADE [Suspect]
     Active Substance: INFLIXIMAB
     Indication: PSORIASIS
     Route: 042
     Dates: start: 20100316, end: 20140224
  4. REMICADE [Suspect]
     Active Substance: INFLIXIMAB
     Indication: PSORIASIS
     Route: 042
     Dates: end: 20140721

REACTIONS (9)
  - Basal cell carcinoma [Unknown]
  - Squamous cell carcinoma [Unknown]
  - Basal cell carcinoma [Unknown]
  - Squamous cell carcinoma [Recovered/Resolved]
  - Basal cell carcinoma [Unknown]
  - Squamous cell carcinoma [Unknown]
  - Squamous cell carcinoma of skin [Unknown]
  - Peripheral sensory neuropathy [Unknown]
  - Pyrexia [Unknown]

NARRATIVE: CASE EVENT DATE: 20130306
